FAERS Safety Report 5244499-X (Version None)
Quarter: 2007Q1

REPORT INFORMATION
  Report Type: 
  Country: None (occurrence: None)
  Receive Date: 20070222
  Receipt Date: 20070214
  Transmission Date: 20070707
  Serious: Yes (Hospitalization)
  Sender: FDA-Public Use
  Company Number: FR-BOEHRINGER INGELHEIM PHARMACEUTICALS, INC.-2007-FF-00225FF

PATIENT
  Age: 61 Year
  Sex: Male

DRUGS (14)
  1. ATROVENT [Suspect]
     Route: 055
     Dates: start: 20070111, end: 20070119
  2. GENTAMICINE PANPHARMA [Concomitant]
     Indication: PYREXIA
     Route: 042
     Dates: start: 20070111, end: 20070115
  3. TARGOCID [Concomitant]
     Indication: PYREXIA
     Route: 042
     Dates: start: 20070111, end: 20070112
  4. CANCIDAS [Concomitant]
     Indication: PYREXIA
     Route: 042
     Dates: start: 20070112, end: 20070119
  5. TAZOCILLINE [Concomitant]
     Indication: PYREXIA
     Route: 042
     Dates: start: 20070111, end: 20070114
  6. BRICANYL [Concomitant]
     Route: 055
     Dates: start: 20070111, end: 20070119
  7. ROVALCYTE [Concomitant]
     Indication: CYTOMEGALOVIRUS INFECTION
  8. BACTRIM DS [Concomitant]
     Route: 048
  9. CELLCEPT [Concomitant]
  10. ADARTREL [Concomitant]
  11. ZOXAN LP [Concomitant]
  12. ACTONEL [Concomitant]
  13. RIFAMYCINE [Concomitant]
     Dates: start: 20070112, end: 20070119
  14. VFEND [Concomitant]
     Route: 048
     Dates: end: 20070112

REACTIONS (1)
  - RASH MACULO-PAPULAR [None]
